FAERS Safety Report 16873610 (Version 3)
Quarter: 2019Q4

REPORT INFORMATION
  Report Type: Spontaneous
  Country: US (occurrence: US)
  Receive Date: 20191001
  Receipt Date: 20191209
  Transmission Date: 20200122
  Serious: Yes (Other)
  Sender: FDA-Public Use
  Company Number: US-APOTEX-2019AP022597

PATIENT
  Age: 67 Year
  Sex: Male

DRUGS (9)
  1. ENOXAPARIN [Suspect]
     Active Substance: ENOXAPARIN
     Dosage: UNK
     Route: 042
     Dates: start: 201909
  2. MORPHINE [Concomitant]
     Active Substance: MORPHINE
     Indication: PAIN
     Dosage: UNK
     Route: 042
  3. OPIUM                              /00036301/ [Concomitant]
     Active Substance: OPIUM
     Indication: DIARRHOEA
     Dosage: UNK UNK, PRN
     Route: 065
  4. OPIUM                              /00036301/ [Concomitant]
     Active Substance: OPIUM
     Indication: VOMITING
  5. SALINE                             /00075401/ [Concomitant]
     Active Substance: SODIUM CHLORIDE
     Indication: PERIPHERAL ARTERY OCCLUSION
     Dosage: UNK
     Route: 042
  6. DIAZEPAM. [Concomitant]
     Active Substance: DIAZEPAM
     Indication: SLEEP DISORDER
     Dosage: UNK UNK, PRN (APPROXIMATELY A QUARTER TABLETS)
     Route: 065
     Dates: start: 2019
  7. ENOXAPARIN [Suspect]
     Active Substance: ENOXAPARIN
     Indication: PERIPHERAL ARTERY THROMBOSIS
     Dosage: 1 DF, QD
     Route: 058
  8. ENOXAPARIN [Suspect]
     Active Substance: ENOXAPARIN
     Dosage: UNK
     Route: 058
     Dates: start: 20190909, end: 20190917
  9. PHENOBARBITAL. [Concomitant]
     Active Substance: PHENOBARBITAL
     Indication: SEIZURE
     Dosage: 47.5 MG, QD, (HALF TABLET ONCE A DAY)
     Route: 065
     Dates: start: 2009

REACTIONS (16)
  - Infusion site discolouration [Recovering/Resolving]
  - Dyschezia [Recovering/Resolving]
  - Language disorder [Recovering/Resolving]
  - Product label issue [Unknown]
  - Abdominal distension [Recovering/Resolving]
  - Dry mouth [Recovering/Resolving]
  - Arthralgia [Not Recovered/Not Resolved]
  - Hypersensitivity [Recovering/Resolving]
  - Fluid retention [Recovering/Resolving]
  - Somnolence [Recovering/Resolving]
  - Gait disturbance [Unknown]
  - Dehydration [Not Recovered/Not Resolved]
  - Injection site necrosis [Recovering/Resolving]
  - Amnesia [Recovering/Resolving]
  - Product dose omission [Unknown]
  - Infusion site swelling [Recovering/Resolving]

NARRATIVE: CASE EVENT DATE: 201909
